FAERS Safety Report 9226245 (Version 2)
Quarter: 2013Q2

REPORT INFORMATION
  Report Type: Report from Study
  Country: BR (occurrence: BR)
  Receive Date: 20130411
  Receipt Date: 20130614
  Transmission Date: 20140414
  Serious: Yes (Hospitalization, Other)
  Sender: FDA-Public Use
  Company Number: BR-ABBOTT-13P-020-1061307-00

PATIENT
  Age: 81 Year
  Sex: Female
  Weight: 65 kg

DRUGS (9)
  1. HUMIRA [Suspect]
     Indication: RHEUMATOID ARTHRITIS
     Route: 058
     Dates: start: 20130219, end: 20130304
  2. ARAVA [Concomitant]
     Indication: ARTHRITIS
     Dosage: 20 MG DAILY
     Route: 048
     Dates: start: 2008
  3. CALCIUM CARBONATE W/VITAMIN D [Concomitant]
     Indication: BONE DISORDER
     Dosage: 600 MG DAILY
     Route: 048
     Dates: start: 2003
  4. VERAPAMIL [Concomitant]
     Indication: CARDIAC DISORDER
     Dosage: 160 MG DAILY
     Route: 048
     Dates: start: 2001
  5. LOSARTAN [Concomitant]
     Indication: HYPERTENSION
     Dosage: 100 MG DAILY
     Route: 048
     Dates: start: 2007
  6. PREDSIM [Concomitant]
     Indication: ARTHRITIS
     Dosage: 5 MG DAILY
     Route: 048
     Dates: start: 2003
  7. ALENIA [Concomitant]
     Indication: ASTHMA
     Dosage: 2 PUFFS DAILY
     Route: 045
     Dates: start: 2006
  8. SALBUTAMOL [Concomitant]
     Indication: ASTHMA
     Route: 045
     Dates: start: 2006
  9. DORFLEX [Concomitant]
     Indication: HYPOTONIA
     Dosage: 1 TABLET DAILY
     Route: 048
     Dates: start: 2010

REACTIONS (6)
  - Nodule [Not Recovered/Not Resolved]
  - Local swelling [Not Recovered/Not Resolved]
  - Breast oedema [Not Recovered/Not Resolved]
  - Thrombosis [Unknown]
  - Osteoarthritis [Not Recovered/Not Resolved]
  - Pain [Not Recovered/Not Resolved]
